FAERS Safety Report 23019102 (Version 1)
Quarter: 2023Q4

REPORT INFORMATION
  Report Type: Spontaneous
  Country: US (occurrence: US)
  Receive Date: 20231003
  Receipt Date: 20231003
  Transmission Date: 20240110
  Serious: Yes (Other)
  Sender: FDA-Public Use
  Company Number: US-NOVOPROD-1121687

PATIENT
  Age: 49 Year
  Sex: Male

DRUGS (1)
  1. NOVOSEVEN [Suspect]
     Active Substance: COAGULATION FACTOR VIIA RECOMBINANT HUMAN
     Indication: Haemophilia A with anti factor VIII
     Dosage: 10 IU, QD
     Route: 042

REACTIONS (2)
  - Haemarthrosis [Recovering/Resolving]
  - Arthritis [Recovering/Resolving]
